FAERS Safety Report 8214082-2 (Version None)
Quarter: 2012Q1

REPORT INFORMATION
  Report Type: 
  Country: None (occurrence: None)
  Receive Date: 20120314
  Receipt Date: 20120314
  Transmission Date: 20120608
  Serious: No
  Sender: FDA-Public Use
  Company Number: None

PATIENT
  Age: 65 Year
  Sex: Male
  Weight: 94.5 kg

DRUGS (1)
  1. PANITUMUMAB [Suspect]
     Indication: COLORECTAL CANCER METASTATIC
     Dosage: 500 MG OTHER IV
     Route: 042
     Dates: start: 20110525

REACTIONS (1)
  - HYPOMAGNESAEMIA [None]
